FAERS Safety Report 9226809 (Version 1)
Quarter: 2013Q2

REPORT INFORMATION
  Report Type: Spontaneous
  Country: US (occurrence: None)
  Receive Date: 20130410
  Receipt Date: 20130410
  Transmission Date: 20140414
  Serious: Yes (Hospitalization)
  Sender: FDA-Public Use
  Company Number: None

PATIENT
  Age: 96 Year
  Sex: Female
  Weight: 65 kg

DRUGS (12)
  1. LEVAQUIN [Suspect]
     Indication: URINARY TRACT INFECTION
     Dosage: RECENT
     Route: 048
  2. LORAZEPAM [Concomitant]
  3. DESONIDE [Concomitant]
  4. RISPERDAL [Concomitant]
  5. TYLENOL [Concomitant]
  6. NYSTATIN [Concomitant]
  7. NS NASAL SPRAY [Concomitant]
  8. FLUTICASONE [Concomitant]
  9. AMLODIPINE [Concomitant]
  10. OXCARBAZEPINE [Concomitant]
  11. VIT DS [Concomitant]
  12. B12 [Concomitant]

REACTIONS (2)
  - Mental status changes [None]
  - Failure to thrive [None]
